FAERS Safety Report 14587943 (Version 4)
Quarter: 2018Q2

REPORT INFORMATION
  Report Type: Spontaneous
  Country: US (occurrence: US)
  Receive Date: 20180301
  Receipt Date: 20180405
  Transmission Date: 20180711
  Serious: No
  Sender: FDA-Public Use
  Company Number: US-PFIZER INC-2018085991

PATIENT
  Age: 34 Year
  Sex: Female
  Weight: 72 kg

DRUGS (4)
  1. ETHINYLESTRADIOL/LEVONORGESTREL [Suspect]
     Active Substance: ETHINYL ESTRADIOL\LEVONORGESTREL
     Dosage: UNK, DAILY (LEVONORGESTREL 0.15 MG/ETHINYL ESTRADIOL 0.03 MG,)
     Route: 048
     Dates: start: 201402
  2. ETHINYLESTRADIOL/LEVONORGESTREL [Suspect]
     Active Substance: ETHINYL ESTRADIOL\LEVONORGESTREL
     Indication: CONTRACEPTION
     Dosage: UNK, 1X/DAY, (LEVONORGESTREL 0.15 MG/ETHINYL ESTRADIOL 0.03 MG,)
     Route: 048
     Dates: start: 20180222
  3. NEULASTA [Suspect]
     Active Substance: PEGFILGRASTIM
     Indication: NEUTROPENIA
     Dosage: UNK (6 MG/ 0.6ML, SINGLE - DOSE X 2 DOSES)
     Route: 058
     Dates: start: 20171122
  4. NEULASTA [Suspect]
     Active Substance: PEGFILGRASTIM
     Dosage: UNK (6 MG/ 0.6ML, SINGLE - DOSE X 2 DOSES)
     Route: 058
     Dates: start: 20171227, end: 20171227

REACTIONS (3)
  - Maternal exposure timing unspecified [None]
  - Treatment noncompliance [Unknown]
  - Unintended pregnancy [Unknown]

NARRATIVE: CASE EVENT DATE: 20180222
